FAERS Safety Report 23633312 (Version 1)
Quarter: 2024Q1

REPORT INFORMATION
  Report Type: Report from Study
  Country: US (occurrence: US)
  Receive Date: 20240314
  Receipt Date: 20240314
  Transmission Date: 20240410
  Serious: No
  Sender: FDA-Public Use
  Company Number: US-BIOVITRUM-2024-US-004022

PATIENT
  Age: 12 Month
  Sex: Male

DRUGS (2)
  1. SYNAGIS [Suspect]
     Active Substance: PALIVIZUMAB
     Indication: Congenital multiplex arthrogryposis
     Dosage: 100 MG/ML ONCE A MONTH 100 MG/ML: INJECT 15 MGPER KG IN THE MUSCLEONCE PER MONTH ; 50MG/0.5ML: INJEC
     Route: 030
     Dates: start: 20230124
  2. EPINEPHRINE [Concomitant]
     Active Substance: EPINEPHRINE
     Indication: Product used for unknown indication

REACTIONS (3)
  - Pyrexia [Unknown]
  - Malaise [Unknown]
  - Intentional product misuse [Not Recovered/Not Resolved]
